FAERS Safety Report 4431123-9 (Version None)
Quarter: 2004Q3

REPORT INFORMATION
  Report Type: 
  Country: None (occurrence: None)
  Receive Date: 20040823
  Receipt Date: 20040816
  Transmission Date: 20050211
  Serious: No
  Sender: FDA-Public Use
  Company Number: 2004UW17337

PATIENT
  Age: 62 Year
  Sex: Female

DRUGS (9)
  1. CRESTOR [Suspect]
     Dosage: 10 MG PO
     Route: 048
  2. CLOZARIL [Suspect]
     Dosage: 250 MG
  3. ACTONEL [Concomitant]
  4. CALCIUM [Concomitant]
  5. NEURONTIN [Concomitant]
  6. PANTOLOC [Concomitant]
  7. SYNTHROID [Concomitant]
  8. TYLENOL [Concomitant]
  9. VITAMIN D [Concomitant]

REACTIONS (3)
  - APATHY [None]
  - DRUG INTERACTION [None]
  - HYPOKINESIA [None]
